FAERS Safety Report 18841934 (Version 1)
Quarter: 2021Q1

REPORT INFORMATION
  Report Type: Spontaneous
  Country: US (occurrence: US)
  Receive Date: 20210203
  Receipt Date: 20210203
  Transmission Date: 20210419
  Serious: Yes (Hospitalization)
  Sender: FDA-Public Use
  Company Number: None

PATIENT
  Age: 66 Year
  Sex: Female

DRUGS (6)
  1. LETROZOLE. [Concomitant]
     Active Substance: LETROZOLE
  2. VERZENIO [Suspect]
     Active Substance: ABEMACICLIB
     Indication: BREAST CANCER FEMALE
     Route: 048
     Dates: start: 20210108
  3. ATORVASTATIN [Concomitant]
     Active Substance: ATORVASTATIN
  4. PANTOPRAZOLE [Concomitant]
     Active Substance: PANTOPRAZOLE
  5. ISOSORB DIN [Concomitant]
     Active Substance: ISOSORBIDE DINITRATE
  6. METOPROL SUC ER [Concomitant]
     Active Substance: METOPROLOL SUCCINATE

REACTIONS (5)
  - Therapy cessation [None]
  - Vomiting [None]
  - Nausea [None]
  - Illness [None]
  - Cardiac disorder [None]

NARRATIVE: CASE EVENT DATE: 20210113
